FAERS Safety Report 25404548 (Version 1)
Quarter: 2025Q2

REPORT INFORMATION
  Report Type: Report from Study
  Country: CA (occurrence: CA)
  Receive Date: 20250606
  Receipt Date: 20250606
  Transmission Date: 20250717
  Serious: Yes (Other)
  Sender: BAUSCH AND LOMB
  Company Number: CA-BAUSCH-BL-2025-006987

PATIENT
  Age: 75 Year
  Sex: Female

DRUGS (2)
  1. RIFAXIMIN [Suspect]
     Active Substance: RIFAXIMIN
     Indication: Gastrointestinal microorganism overgrowth
     Route: 065
     Dates: start: 20231213, end: 20231226
  2. RIFAXIMIN [Suspect]
     Active Substance: RIFAXIMIN
     Indication: Off label use
     Route: 065
     Dates: start: 20250125, end: 20250208

REACTIONS (5)
  - Chronic leukaemia [Unknown]
  - Polycythaemia vera [Unknown]
  - Gastrointestinal microorganism overgrowth [Unknown]
  - Symptom recurrence [Unknown]
  - Off label use [Unknown]

NARRATIVE: CASE EVENT DATE: 20231213
